FAERS Safety Report 9432258 (Version 1)
Quarter: 2013Q3

REPORT INFORMATION
  Report Type: Report from Study
  Country: AU (occurrence: AU)
  Receive Date: 20130731
  Receipt Date: 20130731
  Transmission Date: 20140515
  Serious: Yes (Hospitalization, Other)
  Sender: FDA-Public Use
  Company Number: PHHY2013AU044013

PATIENT
  Age: 69 Year
  Sex: Female

DRUGS (5)
  1. ACLASTA [Suspect]
     Dosage: 5 MG, UNK
     Route: 042
     Dates: start: 20120314
  2. ENDONE [Concomitant]
     Indication: PAIN
     Dosage: 0.5 DF, AT NIGHT
  3. LOSEC [Concomitant]
     Indication: PEPTIC ULCER
     Dosage: 1 DF, BID, FOR A MONTH THEN DAILY
  4. NEO B12 [Concomitant]
     Dosage: ONE MONTHLY
  5. VENTOLINE INHALATOR [Concomitant]
     Indication: DYSPNOEA
     Dosage: 100 UG, (2-4 HOURLY AS NEEDED)

REACTIONS (5)
  - Malaise [Unknown]
  - Syncope [Unknown]
  - Pyrexia [Unknown]
  - Ascites [Unknown]
  - Hydrocele [Unknown]
